FAERS Safety Report 5151046-X (Version None)
Quarter: 2006Q4

REPORT INFORMATION
  Report Type: 
  Country: None (occurrence: None)
  Receive Date: 20061114
  Receipt Date: 20061114
  Transmission Date: 20070319
  Serious: Yes (Hospitalization)
  Sender: FDA-Public Use
  Company Number: None

PATIENT
  Sex: Male
  Weight: 87 kg

DRUGS (5)
  1. ZEVALIN [Suspect]
     Indication: LYMPHOMA
     Dosage: 26 MCI D8
     Dates: start: 20061003
  2. RITUXAN [Suspect]
     Indication: LYMPHOMA
     Dosage: 505MG D1/8
     Dates: start: 20060926
  3. RITUXAN [Suspect]
     Indication: LYMPHOMA
     Dosage: 505MG D1/8
     Dates: start: 20061003
  4. MOTEXAFIN GADOLINIUM (5 MG/KG) [Suspect]
     Indication: LYMPHOMA
     Dosage: 437MG DAYS 1-4 + 8-11
     Dates: start: 20060926, end: 20060929
  5. MOTEXAFIN GADOLINIUM (5 MG/KG) [Suspect]
     Indication: LYMPHOMA
     Dosage: 437MG DAYS 1-4 + 8-11
     Dates: start: 20061003, end: 20061006

REACTIONS (1)
  - FEBRILE NEUTROPENIA [None]
